FAERS Safety Report 4895519-3 (Version None)
Quarter: 2006Q1

REPORT INFORMATION
  Report Type: 
  Country: None (occurrence: None)
  Receive Date: 20060125
  Receipt Date: 20040802
  Transmission Date: 20060701
  Serious: Yes (Hospitalization)
  Sender: FDA-Public Use
  Company Number: FR_040704499

PATIENT
  Age: 4 Month
  Sex: Male
  Weight: 6 kg

DRUGS (8)
  1. VANCOMYCIN [Suspect]
     Dosage: 230 MG/1 DAY
     Dates: start: 20040504, end: 20040508
  2. BACTRIM [Concomitant]
  3. SOLU-MEDROL [Concomitant]
  4. RANITIDINE [Concomitant]
  5. TEGELINE (IMMUNOGLOBULIN HUMAN NORMAL) [Concomitant]
  6. ROCEPHIN [Concomitant]
  7. ACETAMINOPHEN [Concomitant]
  8. MIDAZOLAM HCL [Concomitant]

REACTIONS (11)
  - AGITATION [None]
  - AGRANULOCYTOSIS [None]
  - BONE MARROW TRANSPLANT [None]
  - CRYING [None]
  - IMMUNODEFICIENCY [None]
  - IRRITABILITY [None]
  - PNEUMOCYSTIS JIROVECI PNEUMONIA [None]
  - PNEUMOTHORAX [None]
  - PYELONEPHRITIS ACUTE [None]
  - RESPIRATORY DISTRESS [None]
  - TACHYPNOEA [None]
